FAERS Safety Report 8789686 (Version 1)
Quarter: 2012Q4

REPORT INFORMATION
  Report Type: Spontaneous
  Country: US (occurrence: None)
  Receive Date: 20120905
  Receipt Date: 20120905
  Transmission Date: 20130627
  Serious: Yes (Life-Threatening, Hospitalization, Other)
  Sender: FDA-Public Use
  Company Number: 2012P1055095

PATIENT
  Age: 34 Year
  Sex: Female

DRUGS (3)
  1. FENTANYL [Suspect]
     Indication: BACK PAIN
     Route: 062
  2. FENTANYL [Suspect]
     Indication: BACK PAIN
     Route: 048
  3. OXYCODONE/ ACETAMINOPHEN [Concomitant]

REACTIONS (5)
  - Incorrect route of drug administration [None]
  - Overdose [None]
  - Unresponsive to stimuli [None]
  - Cyanosis [None]
  - Respiratory depression [None]
